FAERS Safety Report 4506733-0 (Version None)
Quarter: 2004Q4

REPORT INFORMATION
  Report Type: 
  Country: None (occurrence: None)
  Receive Date: 20041122
  Receipt Date: 20041116
  Transmission Date: 20050328
  Serious: Yes (Life-Threatening, Disabling)
  Sender: FDA-Public Use
  Company Number: US-MERCK-0411USA02797

PATIENT
  Age: 23 Year
  Sex: Female

DRUGS (2)
  1. VIOXX [Suspect]
     Indication: BACK INJURY
     Route: 048
     Dates: start: 20010101, end: 20020101
  2. SYNTHROID [Concomitant]
     Route: 065

REACTIONS (3)
  - FATIGUE [None]
  - LETHARGY [None]
  - PALPITATIONS [None]
